FAERS Safety Report 14681245 (Version 1)
Quarter: 2018Q1

REPORT INFORMATION
  Report Type: Spontaneous
  Country: US (occurrence: US)
  Receive Date: 20180326
  Receipt Date: 20180326
  Transmission Date: 20180509
  Serious: No
  Sender: FDA-Public Use
  Company Number: US-ASTRAZENECA-2018SE27532

PATIENT
  Age: 78 Year
  Sex: Male

DRUGS (2)
  1. INSULIN [Concomitant]
     Active Substance: INSULIN NOS
  2. BYDUREON [Suspect]
     Active Substance: EXENATIDE
     Route: 065

REACTIONS (9)
  - Hypophagia [Unknown]
  - Hyperhidrosis [Unknown]
  - Blood glucose fluctuation [Unknown]
  - Malaise [Unknown]
  - Weight fluctuation [Unknown]
  - Injection site haemorrhage [Unknown]
  - Tremor [Unknown]
  - Drug dose omission [Unknown]
  - Product quality issue [Unknown]

NARRATIVE: CASE EVENT DATE: 2018
